FAERS Safety Report 15811354 (Version 1)
Quarter: 2019Q1

REPORT INFORMATION
  Report Type: Spontaneous
  Country: IR (occurrence: IR)
  Receive Date: 20190111
  Receipt Date: 20190111
  Transmission Date: 20190417
  Serious: Yes (Death, Hospitalization, Other)
  Sender: FDA-Public Use
  Company Number: IR-DENTSPLY-2019SCDP000003

PATIENT
  Age: 27 Year
  Sex: Male

DRUGS (2)
  1. LIDOCAINE. [Suspect]
     Active Substance: LIDOCAINE
     Indication: PRODUCT USED FOR UNKNOWN INDICATION
     Dosage: 6.5% SPRAY
  2. LIDOCAINE. [Suspect]
     Active Substance: LIDOCAINE
     Dosage: 2%
     Route: 061

REACTIONS (9)
  - Cardiac arrest [Fatal]
  - Toxicity to various agents [Unknown]
  - Suicidal ideation [Unknown]
  - Metabolic acidosis [Unknown]
  - Status epilepticus [Unknown]
  - Bradycardia [Unknown]
  - Sinus bradycardia [Unknown]
  - Depressed level of consciousness [Unknown]
  - Seizure [Unknown]
